FAERS Safety Report 6996886-7 (Version None)
Quarter: 2010Q3

REPORT INFORMATION
  Report Type: 
  Country: None (occurrence: None)
  Receive Date: 20100918
  Receipt Date: 20090924
  Transmission Date: 20110219
  Serious: No
  Sender: FDA-Public Use
  Company Number: US-WYE-H10425309

PATIENT
  Age: 73 Year
  Sex: Female
  Weight: 64.01 kg

DRUGS (1)
  1. PRISTIQ [Suspect]
     Indication: DEPRESSION
     Route: 048
     Dates: start: 20090623, end: 20090601

REACTIONS (1)
  - HALLUCINATION, AUDITORY [None]
